FAERS Safety Report 18138247 (Version 1)
Quarter: 2020Q3

REPORT INFORMATION
  Report Type: Spontaneous
  Country: DK (occurrence: DK)
  Receive Date: 20200812
  Receipt Date: 20200812
  Transmission Date: 20201103
  Serious: Yes (Hospitalization)
  Sender: FDA-Public Use
  Company Number: DK-TEVA-2020-DK-1812249

PATIENT
  Age: 56 Year
  Sex: Female

DRUGS (2)
  1. CANDESARTAN. [Concomitant]
     Active Substance: CANDESARTAN
     Indication: MIGRAINE
     Route: 048
     Dates: start: 2017
  2. AJOVY [Suspect]
     Active Substance: FREMANEZUMAB-VFRM
     Indication: MIGRAINE
     Route: 058
     Dates: start: 20200623

REACTIONS (1)
  - Atrial fibrillation [Recovered/Resolved]

NARRATIVE: CASE EVENT DATE: 20200709
